FAERS Safety Report 17285951 (Version 1)
Quarter: 2020Q1

REPORT INFORMATION
  Report Type: Spontaneous
  Country: US (occurrence: US)
  Receive Date: 20191230
  Receipt Date: 20191230
  Transmission Date: 20200409
  Serious: Yes (Hospitalization)
  Sender: FDA-Public Use
  Company Number: None

PATIENT
  Sex: Female

DRUGS (1)
  1. VERZENIO [Suspect]
     Active Substance: ABEMACICLIB
     Indication: BREAST CANCER
     Route: 048
     Dates: start: 20191113

REACTIONS (7)
  - Mental fatigue [None]
  - Constipation [None]
  - Eating disorder [None]
  - Therapy cessation [None]
  - Blood iron decreased [None]
  - Feeling abnormal [None]
  - Fatigue [None]
